FAERS Safety Report 24218112 (Version 1)
Quarter: 2024Q3

REPORT INFORMATION
  Report Type: Spontaneous
  Country: US (occurrence: None)
  Receive Date: 20240816
  Receipt Date: 20240816
  Transmission Date: 20241017
  Serious: No
  Sender: Public
  Company Number: None

PATIENT
  Age: 48 Year
  Sex: Female

DRUGS (1)
  1. BENLYSTA [Suspect]
     Active Substance: BELIMUMAB
     Route: 058
     Dates: start: 202408

REACTIONS (5)
  - Depressed mood [None]
  - Crying [None]
  - Arthralgia [None]
  - Joint swelling [None]
  - Urticaria [None]

NARRATIVE: CASE EVENT DATE: 20240801
